FAERS Safety Report 10358521 (Version 2)
Quarter: 2014Q3

REPORT INFORMATION
  Report Type: Report from Study
  Country: US (occurrence: US)
  Receive Date: 20140801
  Receipt Date: 20140819
  Transmission Date: 20150326
  Serious: Yes (Death, Other)
  Sender: FDA-Public Use
  Company Number: US-ABBVIE-14P-163-1267603-00

PATIENT
  Age: 88 Year
  Sex: Female

DRUGS (1)
  1. HUMIRA [Suspect]
     Active Substance: ADALIMUMAB
     Indication: COLITIS ULCERATIVE
     Route: 058
     Dates: start: 20140719, end: 20140719

REACTIONS (3)
  - Pneumonia [Fatal]
  - Cardiac arrest [Not Recovered/Not Resolved]
  - Disease complication [Fatal]

NARRATIVE: CASE EVENT DATE: 20140724
